FAERS Safety Report 16134863 (Version 2)
Quarter: 2019Q2

REPORT INFORMATION
  Report Type: Spontaneous
  Country: CZ (occurrence: CZ)
  Receive Date: 20190329
  Receipt Date: 20190430
  Transmission Date: 20190711
  Serious: Yes (Life-Threatening, Other)
  Sender: FDA-Public Use
  Company Number: CZ-ELI_LILLY_AND_COMPANY-CZ201903011868

PATIENT
  Sex: Female

DRUGS (4)
  1. OLANZAPINE. [Suspect]
     Active Substance: OLANZAPINE
     Indication: ACUTE PSYCHOSIS
  2. QUETIAPINE. [Suspect]
     Active Substance: QUETIAPINE
     Indication: PSYCHOTIC DISORDER
     Dosage: UNK, UNKNOWN
     Route: 065
  3. CISORDINOL-ACUTARD [Suspect]
     Active Substance: ZUCLOPENTHIXOL ACETATE
     Indication: PRODUCT USED FOR UNKNOWN INDICATION
     Dosage: 50 MG, UNK
     Route: 065
  4. OLANZAPINE. [Suspect]
     Active Substance: OLANZAPINE
     Indication: PSYCHOTIC DISORDER
     Dosage: UNK UNK, UNKNOWN
     Route: 065

REACTIONS (5)
  - Off label use [Recovered/Resolved]
  - Condition aggravated [Recovered/Resolved]
  - Neuroleptic malignant syndrome [Recovering/Resolving]
  - Acute respiratory failure [Recovered/Resolved]
  - Galactorrhoea [Recovering/Resolving]
